FAERS Safety Report 15634683 (Version 7)
Quarter: 2020Q1

REPORT INFORMATION
  Report Type: Report from Study
  Country: US (occurrence: US)
  Receive Date: 20181119
  Receipt Date: 20200212
  Transmission Date: 20200409
  Serious: Yes (Hospitalization, Other)
  Sender: FDA-Public Use
  Company Number: US-ACTELION-A-NJ2017-161303

PATIENT
  Sex: Female
  Weight: 87.98 kg

DRUGS (5)
  1. TYVASO [Concomitant]
     Active Substance: TREPROSTINIL
  2. OPSUMIT [Suspect]
     Active Substance: MACITENTAN
     Indication: PULMONARY ARTERIAL HYPERTENSION
     Dosage: 10 MG, QD
     Route: 048
  3. OPSUMIT [Suspect]
     Active Substance: MACITENTAN
     Dosage: 10 MG, QD
     Route: 048
  4. HUMIRA [Suspect]
     Active Substance: ADALIMUMAB
     Indication: PRODUCT USED FOR UNKNOWN INDICATION
     Route: 065
  5. COUMADIN [Concomitant]
     Active Substance: WARFARIN SODIUM

REACTIONS (23)
  - Muscle spasms [Unknown]
  - Headache [Unknown]
  - Neuropathy peripheral [Unknown]
  - Haemoglobin decreased [Recovering/Resolving]
  - Pneumonia [Unknown]
  - Heart rate irregular [Unknown]
  - Fatigue [Unknown]
  - Eye irritation [Unknown]
  - Sinusitis [Unknown]
  - Fluid retention [Unknown]
  - Pericarditis [Unknown]
  - Rhinorrhoea [Unknown]
  - Nasopharyngitis [Unknown]
  - Asthenia [Unknown]
  - White blood cell count increased [Unknown]
  - Dyspnoea [Unknown]
  - Nerve compression [Unknown]
  - Sluggishness [Unknown]
  - Gastrointestinal infection [Unknown]
  - Anaemia [Unknown]
  - Malaise [Unknown]
  - Nausea [Unknown]
  - Exercise tolerance decreased [Unknown]
